FAERS Safety Report 9236995 (Version 1)
Quarter: 2013Q2

REPORT INFORMATION
  Report Type: Spontaneous
  Country: US (occurrence: US)
  Receive Date: 20130417
  Receipt Date: 20130417
  Transmission Date: 20140414
  Serious: No
  Sender: FDA-Public Use
  Company Number: US-009507513-0801USA03347

PATIENT
  Sex: Male
  Weight: 97.69 kg

DRUGS (3)
  1. VYTORIN [Suspect]
     Indication: HYPERLIPIDAEMIA
     Dosage: 10-20
     Route: 048
     Dates: start: 2006, end: 20080115
  2. ACTONEL [Concomitant]
  3. FLOMAX (MORNIFLUMATE) [Concomitant]

REACTIONS (1)
  - Arteriosclerosis [Not Recovered/Not Resolved]
